FAERS Safety Report 9430627 (Version 1)
Quarter: 2013Q3

REPORT INFORMATION
  Report Type: Spontaneous
  Country: JP (occurrence: None)
  Receive Date: 20130726
  Receipt Date: 20130726
  Transmission Date: 20140515
  Serious: No
  Sender: FDA-Public Use
  Company Number: TCI2012A04821

PATIENT
  Age: 37 Year
  Sex: Female

DRUGS (6)
  1. LANSOPRAZOLE [Suspect]
     Indication: GASTRIC ULCER
     Route: 048
     Dates: start: 20120731, end: 20120827
  2. BUFFERIN A81 (ACETYLSALICYLIC ACID, ALUMINIUM GLYCINATE) [Concomitant]
  3. PANALDINE (TICLOPIDINE HYDROCHLORIDE) [Concomitant]
  4. ALEVIATIN (PHENYTOIN) [Concomitant]
  5. SALUMOSIN (NICERGOLINE) [Concomitant]
  6. PERDIPINE (NICARDIPINE HYDROCHLORIDE) [Concomitant]

REACTIONS (1)
  - Adenocarcinoma of the cervix [None]
